FAERS Safety Report 24649817 (Version 1)
Quarter: 2024Q4

REPORT INFORMATION
  Report Type: Spontaneous
  Country: BR (occurrence: BR)
  Receive Date: 20241121
  Receipt Date: 20241121
  Transmission Date: 20250115
  Serious: Yes (Hospitalization, Other)
  Sender: MERCK KGAA
  Company Number: BR-Merck Healthcare KGaA-2024060884

PATIENT
  Sex: Female

DRUGS (2)
  1. EUTHYROX [Suspect]
     Active Substance: LEVOTHYROXINE SODIUM
     Indication: Post procedural hypothyroidism
     Dosage: INCREASING OR DECREASING THE DOSAGE
     Route: 048
  2. EUTHYROX [Suspect]
     Active Substance: LEVOTHYROXINE SODIUM
     Indication: Hypothyroidism
     Dosage: 1 TABLET PER DAY IN THE MORNING ON AN EMPTY STOMACH, EXPIRATION: 03/26
     Route: 048

REACTIONS (3)
  - Diabetes mellitus [Unknown]
  - Hospitalisation [Unknown]
  - Hypertension [Unknown]
